FAERS Safety Report 15549617 (Version 2)
Quarter: 2021Q1

REPORT INFORMATION
  Report Type: Report from Study
  Country: FR (occurrence: FR)
  Receive Date: 20181025
  Receipt Date: 20210223
  Transmission Date: 20210419
  Serious: Yes (Life-Threatening, Other)
  Sender: FDA-Public Use
  Company Number: FR-AUROBINDO-AUR-APL-2018-051071

PATIENT
  Age: 66 Year
  Sex: Female

DRUGS (4)
  1. BEVACIZUMAB. [Suspect]
     Active Substance: BEVACIZUMAB
     Indication: OVARIAN CANCER RECURRENT
     Dosage: UNK
     Route: 065
  2. CARBOPLATIN. [Suspect]
     Active Substance: CARBOPLATIN
     Indication: OVARIAN CANCER RECURRENT
     Dosage: 1 DOSAGE FORM, CYCLICAL (,(ON DAYS 1 AND 8, FOR 6 CYCLES)
     Route: 065
     Dates: start: 2015
  3. PACLITAXEL. [Suspect]
     Active Substance: PACLITAXEL
     Indication: OVARIAN CANCER RECURRENT
     Dosage: 175 MILLIGRAM/SQ. METER
     Route: 065
  4. GEMCITABINE. [Concomitant]
     Active Substance: GEMCITABINE
     Indication: OVARIAN CANCER RECURRENT
     Dosage: 1 DOSAGE FORM, CYCLICAL UNK, 6 CYCLICAL,(ON DAYS 1 AND 8, FOR 6 CYCLES)
     Route: 065
     Dates: start: 2015

REACTIONS (11)
  - Anaemia [Unknown]
  - Escherichia infection [Recovered/Resolved]
  - Toxicity to various agents [Unknown]
  - Asthenia [Unknown]
  - Alopecia [Unknown]
  - Hypersensitivity [Recovered/Resolved]
  - Neuropathy peripheral [Unknown]
  - Pneumonia [Unknown]
  - Hepatotoxicity [Recovered/Resolved]
  - Malignant neoplasm progression [Unknown]
  - Neutropenia [Recovered/Resolved]

NARRATIVE: CASE EVENT DATE: 2014
